FAERS Safety Report 5578021-5 (Version None)
Quarter: 2007Q4

REPORT INFORMATION
  Report Type: 
  Country: None (occurrence: None)
  Receive Date: 20071130
  Receipt Date: 20070702
  Transmission Date: 20080405
  Serious: No
  Sender: FDA-Public Use
  Company Number: US200707000734

PATIENT
  Age: 67 Year
  Sex: Female
  Weight: 146 kg

DRUGS (5)
  1. BYETTA [Suspect]
     Indication: TYPE 2 DIABETES MELLITUS
     Dosage: 5 UG, 2/D, 10 UG, 2/D SUBCUTANEOUS
     Route: 058
  2. GLUCOPHAGE [Concomitant]
  3. LANTUS [Concomitant]
  4. PREMARIN (ESTROGENS CONJUGATED, MEDROGESTONE) [Concomitant]
  5. DICLOFEN (DICLOFENAC POTASSIUM) [Concomitant]

REACTIONS (1)
  - ARTHRITIS [None]
